FAERS Safety Report 6655452-3 (Version None)
Quarter: 2010Q1

REPORT INFORMATION
  Report Type: 
  Country: None (occurrence: None)
  Receive Date: 20100329
  Receipt Date: 20100323
  Transmission Date: 20100710
  Serious: Yes (Death, Life-Threatening, Hospitalization)
  Sender: FDA-Public Use
  Company Number: US-ELI_LILLY_AND_COMPANY-US201003006125

PATIENT
  Age: 72 Year
  Sex: Female
  Weight: 60.9 kg

DRUGS (4)
  1. GEMCITABINE HCL [Suspect]
     Indication: PANCREATIC CARCINOMA
     Dosage: 1000 MG/M2, OTHER
     Dates: start: 20090923, end: 20100202
  2. PANITUMUMAB [Suspect]
     Indication: PANCREATIC CARCINOMA
     Dosage: 365 MG, OTHER
     Dates: start: 20090923, end: 20100125
  3. RADIATION [Suspect]
     Indication: PANCREATIC CARCINOMA
     Dosage: 5040 D/F, UNK
     Dates: start: 20090923, end: 20091030
  4. FLUOROURACIL [Concomitant]
     Dosage: 225 MG/M2, UNK
     Dates: start: 20090923, end: 20091030

REACTIONS (8)
  - DYSPNOEA [None]
  - FATIGUE [None]
  - HAEMOGLOBIN DECREASED [None]
  - HYPOALBUMINAEMIA [None]
  - HYPOPHOSPHATAEMIA [None]
  - HYPOXIA [None]
  - PNEUMONIA [None]
  - SOMNOLENCE [None]
